FAERS Safety Report 8977467 (Version 2)
Quarter: 2014Q2

REPORT INFORMATION
  Report Type: Report from Study
  Country: BR (occurrence: BR)
  Receive Date: 20121219
  Receipt Date: 20131018
  Transmission Date: 20141212
  Serious: Yes (Hospitalization)
  Sender: FDA-Public Use
  Company Number: BR-PFIZER INC-BR-WYE-H09842909

PATIENT
  Age: 29 Year
  Sex: Male
  Weight: 70.4 kg

DRUGS (25)
  1. SIROLIMUS [Suspect]
     Indication: PROPHYLAXIS AGAINST TRANSPLANT REJECTION
     Dosage: 3 MG (3 MG,1 D)
     Route: 048
     Dates: start: 20030403, end: 20030415
  2. METHYLPREDNISOLONE ACETATE [Suspect]
     Dosage: 1 G, SINGLE
     Route: 042
     Dates: start: 20030403, end: 20030403
  3. DACLIZUMAB [Suspect]
     Indication: PROPHYLAXIS AGAINST TRANSPLANT REJECTION
     Dosage: 130 MG, SINGLE
     Route: 042
     Dates: start: 20030403, end: 20030403
  4. MYCOPHENOLATE MOFETIL [Suspect]
     Dosage: 1000 MG, 2X/DAY
     Route: 048
     Dates: start: 20030403, end: 20030413
  5. MYCOPHENOLATE MOFETIL [Suspect]
     Dosage: 1000 MG, 1X/DAY
     Route: 048
     Dates: start: 20030414, end: 20030415
  6. PREDNISONE [Suspect]
     Indication: PROPHYLAXIS AGAINST TRANSPLANT REJECTION
     Dosage: 60 MG (60 MG,1 D)
     Route: 048
     Dates: start: 20030403, end: 20030403
  7. PREDNISONE [Suspect]
     Dosage: 52 MG (52 MG,1 D)
     Route: 048
     Dates: start: 20030404
  8. PREDNISONE [Suspect]
     Dosage: 52 MG (52 MG,1 D)
     Route: 048
     Dates: start: 20120411
  9. CEFALEXIN [Concomitant]
     Dosage: 2 G (2 G,1 D)
     Route: 042
     Dates: start: 20030403, end: 20030404
  10. CLONIDINE [Concomitant]
     Dosage: 1 MG (1 MG,1 D)
     Route: 042
     Dates: start: 20030403, end: 20030403
  11. CLONIDINE [Concomitant]
     Dosage: UNK
     Route: 048
     Dates: start: 20030404
  12. CLONIDINE [Concomitant]
     Dosage: 0.45 MG (0.15 MG,3 D)
     Route: 048
     Dates: start: 20030405, end: 20030410
  13. CLONIDINE [Concomitant]
     Dosage: 0.6 MG (0.3 MG,2 D)
     Route: 048
     Dates: start: 20030416
  14. CLONIDINE [Concomitant]
     Dosage: 0.45 MG (0.15 MG,3 D)
     Route: 048
     Dates: start: 20030417
  15. ERYTHROPOIETIN [Concomitant]
     Dosage: UNK
     Route: 065
     Dates: start: 20030413
  16. GANCICLOVIR [Concomitant]
     Dosage: (80 MG,1 IN 3 WK)
     Route: 042
     Dates: start: 20030403
  17. NIFEDIPINE [Concomitant]
     Dosage: 40 MG (20 MG,2 D)
     Route: 048
     Dates: start: 20030407
  18. NORFLOXACIN [Concomitant]
     Dosage: 400 MG (200 MG,2 D)
     Route: 048
     Dates: start: 20030414, end: 20030415
  19. OMEPRAZOLE [Concomitant]
     Dosage: 40 MG (20 MG,2 D)
     Route: 048
     Dates: start: 20030403
  20. SULFAMETHOXAZOLE/TRIMETHOPRIM [Concomitant]
     Dosage: DRUG REPORTED: SULPHAMETOXAZOLE +TRIMETOPRIM (960 MG,1 TOTAL)
     Route: 048
     Dates: start: 20030403
  21. CEFALEXIN [Concomitant]
     Dosage: 1000 MG (500 MG,2 D)
     Route: 048
     Dates: start: 20030405, end: 20030414
  22. CEFALOTIN [Concomitant]
     Dosage: DRUG REPORTED: CEPHALOTINE (1 G,2 D)
     Route: 042
     Dates: start: 20030403, end: 20030405
  23. EPOETIN BETA [Concomitant]
     Dosage: (1 IU,4 IN 3 WK)
     Route: 058
     Dates: start: 20030413
  24. FUROSEMIDE [Concomitant]
     Dosage: 40 MG (20 MG,2 D)
     Route: 042
     Dates: start: 20030403, end: 20030407
  25. METHENAMINE [Concomitant]
     Dosage: DRUG REPORTED: METENAMINE+ METHYLTIONINIO,FORM:DRAG (140 MG,3 D)
     Route: 048
     Dates: start: 20030408, end: 20030412

REACTIONS (1)
  - Renal vein thrombosis [Recovered/Resolved]
